FAERS Safety Report 7378465-5 (Version None)
Quarter: 2011Q1

REPORT INFORMATION
  Report Type: 
  Country: None (occurrence: None)
  Receive Date: 20110328
  Receipt Date: 20110316
  Transmission Date: 20110831
  Serious: Yes (Hospitalization, Other)
  Sender: FDA-Public Use
  Company Number: ES-ELI_LILLY_AND_COMPANY-ES201103005123

PATIENT
  Sex: Female
  Weight: 55 kg

DRUGS (5)
  1. TROMALYT [Concomitant]
     Indication: CEREBRAL ARTERY EMBOLISM
     Dosage: 1 D/F, DAILY (1/D)
     Route: 048
     Dates: start: 20110301
  2. OMEPRAZOLE [Concomitant]
     Indication: GASTRIC DISORDER
     Dosage: 1 D/F, DAILY (1/D)
     Route: 048
  3. SEROQUEL [Concomitant]
     Dosage: 1 D/F, DAILY (1/D)
     Route: 048
  4. PLAVIX [Concomitant]
     Indication: CEREBRAL ARTERY EMBOLISM
     Dosage: 1 D/F, DAILY (1/D)
     Route: 048
  5. FORTEO [Suspect]
     Indication: OSTEOPOROSIS
     Dosage: 20 UG, DAILY (1/D)
     Route: 058
     Dates: start: 20090309, end: 20110316

REACTIONS (2)
  - BRONCHITIS [None]
  - CEREBRAL ARTERY EMBOLISM [None]
